FAERS Safety Report 6710135-6 (Version None)
Quarter: 2010Q2

REPORT INFORMATION
  Report Type: 
  Country: None (occurrence: None)
  Receive Date: 20100504
  Receipt Date: 20100421
  Transmission Date: 20101027
  Serious: Yes (Other)
  Sender: FDA-Public Use
  Company Number: US-PFIZER INC-2010035221

PATIENT
  Sex: Female
  Weight: 83 kg

DRUGS (11)
  1. CHANTIX [Suspect]
     Indication: SMOKING CESSATION THERAPY
     Dosage: 0.5 MG, 1X/DAY
     Route: 048
     Dates: start: 20080101, end: 20080101
  2. CHANTIX [Suspect]
     Dosage: UNK
     Dates: start: 20100421
  3. LEXAPRO [Concomitant]
     Dosage: UNK
  4. ATENOLOL [Concomitant]
     Dosage: UNK
  5. LOVAZA [Concomitant]
     Indication: DIVERTICULITIS
     Dosage: 1000 MG, 2X/DAY
  6. GLUCOSAMINE [Concomitant]
     Dosage: 1500 MG, UNK
  7. ACETYLSALICYLIC ACID [Concomitant]
     Indication: CARDIAC DISORDER
  8. CHONDROITIN SULFATE [Concomitant]
     Dosage: 1200 MG, UNK
  9. VITAMIN D [Concomitant]
     Dosage: 400 IU, UNK
  10. COENZYME Q10 [Concomitant]
     Dosage: UNK
  11. GLUCOSE MONOHYDRATE [Concomitant]
     Indication: DIVERTICULITIS

REACTIONS (2)
  - CAROTID ARTERY BYPASS [None]
  - PERSONALITY CHANGE [None]
